FAERS Safety Report 5764500-4 (Version None)
Quarter: 2008Q2

REPORT INFORMATION
  Report Type: 
  Country: None (occurrence: None)
  Receive Date: 20080610
  Receipt Date: 20080605
  Transmission Date: 20081010
  Serious: Yes (Other)
  Sender: FDA-Public Use
  Company Number: DE-PFIZER INC-2008021611

PATIENT
  Sex: Male

DRUGS (1)
  1. XALATAN [Suspect]
     Route: 047

REACTIONS (1)
  - MYOCARDIAL INFARCTION [None]
